FAERS Safety Report 15440367 (Version 1)
Quarter: 2018Q3

REPORT INFORMATION
  Report Type: Spontaneous
  Country: US (occurrence: US)
  Receive Date: 20180925
  Receipt Date: 20180925
  Transmission Date: 20181010
  Serious: Yes (Disabling)
  Sender: FDA-Public Use
  Company Number: None

PATIENT
  Age: 39 Year
  Sex: Female
  Weight: 47.63 kg

DRUGS (4)
  1. MAGNESIUM [Concomitant]
     Active Substance: MAGNESIUM
  2. ESTROGEN 0.3MG [Concomitant]
  3. VITAMIN D [Concomitant]
     Active Substance: CHOLECALCIFEROL
  4. MIRENA [Suspect]
     Active Substance: LEVONORGESTREL
     Dates: start: 20150117, end: 20170925

REACTIONS (7)
  - Neoplasm malignant [None]
  - Spinal disorder [None]
  - Memory impairment [None]
  - Autoimmune disorder [None]
  - Gastrointestinal disorder [None]
  - Hysterectomy [None]
  - Renal disorder [None]
